FAERS Safety Report 5984818-X (Version None)
Quarter: 2008Q4

REPORT INFORMATION
  Report Type: 
  Country: None (occurrence: None)
  Receive Date: 20081208
  Receipt Date: 20081202
  Transmission Date: 20090506
  Serious: Yes (Other)
  Sender: FDA-Public Use
  Company Number: GB-ALLERGAN-0815289US

PATIENT
  Sex: Female

DRUGS (2)
  1. BOTOX [Suspect]
     Indication: DRUG USE FOR UNKNOWN INDICATION
     Dosage: UNK, SINGLE
     Dates: start: 20070101, end: 20070101
  2. BOTOX [Suspect]
     Dosage: UNK, SINGLE
     Dates: start: 20030101, end: 20030101

REACTIONS (1)
  - SKIN WRINKLING [None]
